FAERS Safety Report 16368625 (Version 2)
Quarter: 2019Q3

REPORT INFORMATION
  Report Type: Spontaneous
  Country: US (occurrence: US)
  Receive Date: 20190529
  Receipt Date: 20190705
  Transmission Date: 20191004
  Serious: No
  Sender: FDA-Public Use
  Company Number: US-ASTRAZENECA-2019SE68924

PATIENT
  Age: 24815 Day
  Sex: Female
  Weight: 63.5 kg

DRUGS (1)
  1. BYDUREON BCISE [Suspect]
     Active Substance: EXENATIDE
     Indication: DIABETES MELLITUS
     Dosage: ONCE A WEEK
     Route: 058
     Dates: start: 20190425

REACTIONS (4)
  - Injection site bruising [Unknown]
  - Contusion [Unknown]
  - Wrong technique in device usage process [Unknown]
  - Injection site mass [Unknown]

NARRATIVE: CASE EVENT DATE: 20190425
